FAERS Safety Report 23970232 (Version 1)
Quarter: 2024Q2

REPORT INFORMATION
  Report Type: Spontaneous
  Country: US (occurrence: US)
  Receive Date: 20240613
  Receipt Date: 20240613
  Transmission Date: 20240716
  Serious: No
  Sender: FDA-Public Use
  Company Number: US-PADAGIS-2024PAD00994

PATIENT

DRUGS (2)
  1. ESTRADIOL VAGINAL [Suspect]
     Active Substance: ESTRADIOL
     Indication: Cystocele
     Dosage: 1 G, THREE TIMES PER WEEK
     Route: 065
     Dates: start: 202311
  2. ESTRADIOL VAGINAL [Suspect]
     Active Substance: ESTRADIOL
     Dosage: 1 G, 2 TIMES PER WEEK
     Route: 065
     Dates: start: 202311

REACTIONS (4)
  - Underdose [Unknown]
  - Inappropriate schedule of product administration [Unknown]
  - Product use issue [Unknown]
  - Product use in unapproved indication [Unknown]

NARRATIVE: CASE EVENT DATE: 20231101
